FAERS Safety Report 6538140-3 (Version None)
Quarter: 2010Q1

REPORT INFORMATION
  Report Type: 
  Country: None (occurrence: None)
  Receive Date: 20100114
  Receipt Date: 20091221
  Transmission Date: 20100710
  Serious: No
  Sender: FDA-Public Use
  Company Number: US-BAYER-201010131BCC

PATIENT
  Sex: Female
  Weight: 73 kg

DRUGS (2)
  1. ALEVE (CAPLET) [Suspect]
     Indication: MYALGIA
     Route: 048
  2. GLUCOPHAGE [Concomitant]
     Route: 065

REACTIONS (3)
  - EXTREMITY CONTRACTURE [None]
  - MUSCULAR WEAKNESS [None]
  - TREMOR [None]
